FAERS Safety Report 8836124 (Version 3)
Quarter: 2013Q2

REPORT INFORMATION
  Report Type: Spontaneous
  Country: None (occurrence: US)
  Receive Date: 20121011
  Receipt Date: 20130613
  Transmission Date: 20140414
  Serious: Yes (Other)
  Sender: FDA-Public Use
  Company Number: US-ALLERGAN-1213796US

PATIENT
  Age: 68 Year
  Sex: Male

DRUGS (1)
  1. OZURDEX [Suspect]
     Indication: UVEITIS
     Dosage: 0.7 MG, SINGLE
     Route: 031
     Dates: start: 20120830, end: 20120912

REACTIONS (7)
  - Corneal epithelium defect [Recovered/Resolved]
  - Visual acuity reduced [Unknown]
  - Device dislocation [Recovered/Resolved]
  - Corneal oedema [Recovered/Resolved]
  - Eye irritation [Unknown]
  - Foreign body sensation in eyes [Unknown]
  - Eye pain [Unknown]
